FAERS Safety Report 9020915 (Version 1)
Quarter: 2013Q1

REPORT INFORMATION
  Report Type: Spontaneous
  Country: US (occurrence: US)
  Receive Date: 20130119
  Receipt Date: 20130119
  Transmission Date: 20140127
  Serious: No
  Sender: FDA-Public Use
  Company Number: US-ALLERGAN-1205074US

PATIENT
  Age: 57 Year
  Sex: Female

DRUGS (4)
  1. BOTOX COSMETIC [Suspect]
     Indication: SKIN WRINKLING
     Dosage: UNK UNITS, SINGLE
     Route: 030
     Dates: start: 20120406, end: 20120406
  2. CHOLESTEROL- AND TRIGLYCERIDE REDUCERS [Concomitant]
     Indication: BLOOD CHOLESTEROL INCREASED
     Dosage: 1 UNK, QD
  3. BETA BLOCKING AGENTS [Concomitant]
     Indication: HYPERTENSION
     Dosage: 1 UNK, QD
  4. THYROID THERAPY [Concomitant]
     Indication: HYPOTHYROIDISM
     Dosage: 1 UNK, QD

REACTIONS (2)
  - Skin wrinkling [Unknown]
  - Drug ineffective [Unknown]
